FAERS Safety Report 19068204 (Version 1)
Quarter: 2021Q1

REPORT INFORMATION
  Report Type: Spontaneous
  Country: US (occurrence: US)
  Receive Date: 20210327
  Receipt Date: 20210327
  Transmission Date: 20210420
  Serious: Yes (Hospitalization)
  Sender: FDA-Public Use
  Company Number: None

PATIENT
  Age: 62 Year
  Sex: Male
  Weight: 125.7 kg

DRUGS (3)
  1. ACALABRUTINIB. [Suspect]
     Active Substance: ACALABRUTINIB
     Dates: end: 20210317
  2. RITUXIMAB (MOAB C2B8 ANTI CD20, CHIMERIC) [Concomitant]
     Active Substance: RITUXIMAB
     Dates: end: 20210315
  3. BENDAMUSTINE HYDROCHLORIDE. [Concomitant]
     Active Substance: BENDAMUSTINE HYDROCHLORIDE
     Dates: end: 20210316

REACTIONS (7)
  - Pyrexia [None]
  - Fatigue [None]
  - Dyspnoea [None]
  - Headache [None]
  - Asthenia [None]
  - Nausea [None]
  - Pain [None]

NARRATIVE: CASE EVENT DATE: 20210318
